FAERS Safety Report 22017894 (Version 1)
Quarter: 2023Q1

REPORT INFORMATION
  Report Type: Spontaneous
  Country: US (occurrence: US)
  Receive Date: 20230221
  Receipt Date: 20230221
  Transmission Date: 20230417
  Serious: Yes (Other)
  Sender: FDA-Public Use
  Company Number: US-TAKEDA-2023TUS017161

PATIENT

DRUGS (1)
  1. NINLARO [Suspect]
     Active Substance: IXAZOMIB CITRATE
     Indication: Acute lymphocytic leukaemia (in remission)
     Dosage: 3 MILLIGRAM
     Route: 048
     Dates: start: 20230216

REACTIONS (1)
  - Diabetes mellitus [Unknown]
